FAERS Safety Report 23311442 (Version 2)
Quarter: 2024Q2

REPORT INFORMATION
  Report Type: Report from Study
  Country: US (occurrence: US)
  Receive Date: 20231219
  Receipt Date: 20240418
  Transmission Date: 20240716
  Serious: No
  Sender: FDA-Public Use
  Company Number: US-ACADIA PHARMACEUTICALS INC.-ACA-2023-PIM-005412

PATIENT
  Sex: Female

DRUGS (2)
  1. NUPLAZID [Suspect]
     Active Substance: PIMAVANSERIN TARTRATE
     Indication: Parkinson^s disease
     Dosage: 34 MILLIGRAM, QD
     Route: 048
     Dates: start: 20230928
  2. LOSARTAN [Suspect]
     Active Substance: LOSARTAN
     Dosage: UNK
     Route: 065

REACTIONS (8)
  - Dizziness [Unknown]
  - Dry mouth [Unknown]
  - Tongue dry [Unknown]
  - Speech disorder [Unknown]
  - Dizziness postural [Unknown]
  - Balance disorder [Unknown]
  - Musculoskeletal disorder [Unknown]
  - Blood pressure decreased [Unknown]
